FAERS Safety Report 7516811-X (Version None)
Quarter: 2011Q2

REPORT INFORMATION
  Report Type: 
  Country: None (occurrence: None)
  Receive Date: 20110601
  Receipt Date: 20110526
  Transmission Date: 20111010
  Serious: Yes (Death, Life-Threatening)
  Sender: FDA-Public Use
  Company Number: GB-MERCK-1105GBR00099

PATIENT
  Age: 49 Year
  Sex: Female
  Weight: 108 kg

DRUGS (12)
  1. ORLISTAT [Concomitant]
     Route: 065
     Dates: start: 20100929
  2. CARVEDILOL [Concomitant]
     Route: 065
  3. JANUVIA [Suspect]
     Indication: DIABETES MELLITUS
     Route: 048
     Dates: start: 20101115, end: 20110317
  4. ISOSORBIDE MONONITRATE [Concomitant]
     Route: 065
  5. RAMIPRIL [Concomitant]
     Route: 065
  6. ASPIRIN [Concomitant]
     Route: 065
  7. FUROSEMIDE [Concomitant]
     Route: 065
  8. METFORMIN [Concomitant]
     Route: 065
  9. ACETAMINOPHEN AND CODEINE PHOSPHATE [Concomitant]
     Route: 065
  10. ROSUVASTATIN CALCIUM [Concomitant]
     Route: 065
  11. AMLODIPINE [Concomitant]
     Route: 065
  12. NITROGLYCERIN [Concomitant]
     Route: 065

REACTIONS (3)
  - DEATH [None]
  - PERIPHERAL COLDNESS [None]
  - MUSCLE SPASMS [None]
